FAERS Safety Report 25741891 (Version 1)
Quarter: 2025Q3

REPORT INFORMATION
  Report Type: Spontaneous
  Country: US (occurrence: US)
  Receive Date: 20250829
  Receipt Date: 20250829
  Transmission Date: 20251020
  Serious: No
  Sender: AMGEN
  Company Number: US-AMGEN-USASP2025170637

PATIENT
  Age: 71 Year
  Sex: Male

DRUGS (2)
  1. TAVNEOS [Suspect]
     Active Substance: AVACOPAN
     Indication: Renal vasculitis
     Route: 065
     Dates: start: 20240826
  2. TAVNEOS [Suspect]
     Active Substance: AVACOPAN
     Route: 065

REACTIONS (2)
  - Pain [Unknown]
  - Product administration error [Unknown]

NARRATIVE: CASE EVENT DATE: 20250825
